FAERS Safety Report 12710189 (Version 4)
Quarter: 2016Q4

REPORT INFORMATION
  Report Type: Report from Study
  Country: JP (occurrence: JP)
  Receive Date: 20160902
  Receipt Date: 20161118
  Transmission Date: 20170207
  Serious: Yes (Hospitalization, Other)
  Sender: FDA-Public Use
  Company Number: JP-AMGEN-JPNCT2016071217

PATIENT
  Age: 72 Year
  Sex: Male
  Weight: 50.3 kg

DRUGS (60)
  1. ELPLAT [Concomitant]
     Active Substance: OXALIPLATIN
     Dosage: 100 MG, Q2WEEKS
     Route: 041
     Dates: start: 20160620, end: 20160815
  2. 5-FU                               /00098801/ [Concomitant]
     Active Substance: FLUOROURACIL
     Dosage: 300 MG, Q2WK
     Route: 040
     Dates: start: 20160620, end: 20160815
  3. DEXART [Concomitant]
     Active Substance: DEXAMETHASONE SODIUM PHOSPHATE
     Dosage: 6.6 MG, UNK
     Route: 041
     Dates: start: 20160328
  4. DEXART [Concomitant]
     Active Substance: DEXAMETHASONE SODIUM PHOSPHATE
     Dosage: 6.6 MG, UNK
     Route: 041
     Dates: start: 20160912
  5. URIEF [Concomitant]
     Active Substance: SILODOSIN
     Dosage: 4 MG, BID
     Route: 048
     Dates: start: 20160824
  6. SHAKUYAKUKANZOTO [Concomitant]
     Active Substance: HERBALS
     Dosage: UNK, TID
     Route: 048
     Dates: end: 20161030
  7. SHAKUYAKUKANZOTO [Concomitant]
     Active Substance: HERBALS
     Dosage: UNK, TID
     Route: 048
     Dates: start: 20161102
  8. MYSER                              /01249201/ [Concomitant]
     Active Substance: DIFLUPREDNATE
     Indication: PROMOTION OF WOUND HEALING
     Dosage: UNK
     Route: 062
     Dates: start: 20160425, end: 20161030
  9. MAGMITT [Concomitant]
     Active Substance: MAGNESIUM OXIDE
     Dosage: UNK, TID
     Route: 048
     Dates: start: 20160328, end: 20161030
  10. ELPLAT [Concomitant]
     Active Substance: OXALIPLATIN
     Dosage: 100 MG, Q2WEEKS
     Route: 041
     Dates: start: 20160912
  11. SODIUM CHLORIDE. [Concomitant]
     Active Substance: SODIUM CHLORIDE
     Dosage: 20 ML, Q2WK
     Route: 042
     Dates: start: 20160912
  12. GLUCOSE [Concomitant]
     Active Substance: DEXTROSE
     Dosage: 50 ML, Q2WK
     Route: 041
     Dates: start: 20160912
  13. MYOCOR [Concomitant]
     Active Substance: NITROGLYCERIN
     Indication: CORONARY ARTERY DISEASE
     Dosage: 1 DF, UNK
     Route: 060
     Dates: end: 20160821
  14. AZUNOL                             /00620101/ [Concomitant]
     Dosage: UNK
     Route: 062
     Dates: start: 20161101
  15. 5-FU                               /00098801/ [Concomitant]
     Active Substance: FLUOROURACIL
     Indication: COLON CANCER
     Dosage: 600 MG/M2, Q2WK
     Route: 040
     Dates: start: 20160328, end: 20160523
  16. SHAKUYAKUKANZOTO [Concomitant]
     Active Substance: HERBALS
     Dosage: UNK, TID
     Route: 048
     Dates: start: 20160824
  17. MINOMYCIN [Concomitant]
     Active Substance: MINOCYCLINE HYDROCHLORIDE
     Dosage: 100 MG, BID
     Route: 048
     Dates: start: 20160328, end: 20160821
  18. HEPARINOID [Concomitant]
     Active Substance: CHONDROITIN SULFATE (BOVINE)
     Indication: DERMATITIS
     Dosage: UNK, BID
     Route: 062
     Dates: start: 20160328, end: 20161030
  19. MYSER                              /01249201/ [Concomitant]
     Active Substance: DIFLUPREDNATE
     Dosage: UNK
     Route: 062
     Dates: start: 20161101
  20. ELPLAT [Concomitant]
     Active Substance: OXALIPLATIN
     Indication: COLON CANCER
     Dosage: 130 MG, Q2WEEKS
     Route: 041
     Dates: start: 20160328, end: 20160523
  21. CALCIUM LEVOFOLINATE [Concomitant]
     Active Substance: LEVOLEUCOVORIN CALCIUM
     Dosage: UNK, Q2WK
     Route: 041
     Dates: start: 20160620, end: 20160815
  22. CALCIUM LEVOFOLINATE [Concomitant]
     Active Substance: LEVOLEUCOVORIN CALCIUM
     Dosage: 300 MG, Q2WEEKS
     Route: 041
     Dates: start: 20160912
  23. JUVELA N [Concomitant]
     Active Substance: TOCOPHERYL NICOTINATE, D-.ALPHA.
     Dosage: 200 MG, TID
     Route: 048
     Dates: end: 20161030
  24. FRANDOL [Concomitant]
     Active Substance: ISOSORBIDE DINITRATE
     Indication: CORONARY ARTERY DISEASE
     Dosage: 40 MG, QD
     Route: 062
     Dates: end: 20160821
  25. FRANDOL [Concomitant]
     Active Substance: ISOSORBIDE DINITRATE
     Dosage: 40 MG, QD
     Route: 062
     Dates: end: 20161030
  26. DRENISON                           /00182901/ [Concomitant]
     Indication: DERMATITIS
     Dosage: UNK, QD
     Route: 062
     Dates: start: 20160620, end: 20160821
  27. PANITUMUMAB [Suspect]
     Active Substance: PANITUMUMAB
     Indication: COLON CANCER
     Dosage: 300 MG, Q2WK
     Route: 041
     Dates: start: 20160328, end: 20160523
  28. 5-FU                               /00098801/ [Concomitant]
     Active Substance: FLUOROURACIL
     Dosage: 3100 MG, Q2WK
     Route: 041
     Dates: start: 20160620, end: 20160815
  29. GLUCOSE [Concomitant]
     Active Substance: DEXTROSE
     Dosage: 100 ML, Q2WK
     Route: 041
     Dates: start: 20160328
  30. GLUCOSE [Concomitant]
     Active Substance: DEXTROSE
     Dosage: 250 ML, Q2WK
     Route: 041
     Dates: start: 20160328
  31. GLUCOSE [Concomitant]
     Active Substance: DEXTROSE
     Dosage: 50 ML, Q2WK
     Route: 041
     Dates: start: 20160328
  32. GLUCOSE [Concomitant]
     Active Substance: DEXTROSE
     Dosage: 100 ML, Q2WK
     Route: 041
     Dates: start: 20160912
  33. URIEF [Concomitant]
     Active Substance: SILODOSIN
     Dosage: 4 MG, BID
     Route: 048
     Dates: end: 20161030
  34. SHINLUCK [Concomitant]
     Active Substance: SODIUM PICOSULFATE
     Dosage: 20 ML, QD
     Route: 048
     Dates: start: 20160328, end: 20161030
  35. 5-FU                               /00098801/ [Concomitant]
     Active Substance: FLUOROURACIL
     Dosage: 3800 MG, Q2WEEKS
     Route: 041
     Dates: start: 20160328, end: 20160523
  36. 5-FU                               /00098801/ [Concomitant]
     Active Substance: FLUOROURACIL
     Dosage: 300 MG, Q2WK
     Route: 040
     Dates: start: 20160912
  37. CALCIUM LEVOFOLINATE [Concomitant]
     Active Substance: LEVOLEUCOVORIN CALCIUM
     Indication: COLON CANCER
     Dosage: 300 MG, Q2WEEKS
     Route: 041
     Dates: start: 20160328, end: 20160523
  38. GRANISETRON                        /01178102/ [Concomitant]
     Active Substance: GRANISETRON
     Dosage: 1 MG/ML, UNK
     Route: 041
     Dates: start: 20160328
  39. JUVELA N [Concomitant]
     Active Substance: TOCOPHERYL NICOTINATE, D-.ALPHA.
     Indication: HYPERLIPIDAEMIA
     Dosage: 200 MG, TID
     Route: 048
     Dates: end: 20160821
  40. JUVELA N [Concomitant]
     Active Substance: TOCOPHERYL NICOTINATE, D-.ALPHA.
     Dosage: 200 MG, TID
     Route: 048
     Dates: start: 20160824
  41. FRANDOL [Concomitant]
     Active Substance: ISOSORBIDE DINITRATE
     Dosage: 40 MG, QD
     Route: 062
     Dates: start: 20160824
  42. PANITUMUMAB [Suspect]
     Active Substance: PANITUMUMAB
     Dosage: 240 MG, Q2WK
     Route: 041
     Dates: start: 20160912
  43. SODIUM CHLORIDE. [Concomitant]
     Active Substance: SODIUM CHLORIDE
     Dosage: 20 ML, Q2WK
     Route: 042
     Dates: start: 20160328
  44. GRANISETRON                        /01178102/ [Concomitant]
     Active Substance: GRANISETRON
     Dosage: 1 MG/ML, UNK
     Route: 041
     Dates: start: 20160912
  45. PANITUMUMAB [Suspect]
     Active Substance: PANITUMUMAB
     Dosage: 300 MG, Q2WK
     Route: 041
     Dates: start: 20160620, end: 20160704
  46. 5-FU                               /00098801/ [Concomitant]
     Active Substance: FLUOROURACIL
     Dosage: 3100 MG, Q2WEEKS
     Route: 041
     Dates: start: 20160912
  47. SODIUM CHLORIDE. [Concomitant]
     Active Substance: SODIUM CHLORIDE
     Dosage: 100 ML, Q2WK
     Route: 042
     Dates: start: 20160328, end: 20160704
  48. SODIUM CHLORIDE. [Concomitant]
     Active Substance: SODIUM CHLORIDE
     Dosage: 250 MG, Q2WK
     Route: 041
     Dates: start: 20160328
  49. SODIUM CHLORIDE. [Concomitant]
     Active Substance: SODIUM CHLORIDE
     Dosage: 250 MG, Q2WK
     Route: 041
     Dates: start: 20160912
  50. GLUCOSE [Concomitant]
     Active Substance: DEXTROSE
     Dosage: 250 ML, Q2WK
     Route: 041
     Dates: start: 20160328
  51. GLUCOSE [Concomitant]
     Active Substance: DEXTROSE
     Dosage: 250 ML, Q2WK
     Route: 041
     Dates: start: 20160912
  52. GLUCOSE [Concomitant]
     Active Substance: DEXTROSE
     Dosage: 250 ML, Q2WK
     Route: 041
     Dates: start: 20160912
  53. URIEF [Concomitant]
     Active Substance: SILODOSIN
     Indication: DYSURIA
     Dosage: 4 MG, BID
     Route: 048
     Dates: end: 20160821
  54. SHAKUYAKUKANZOTO [Concomitant]
     Active Substance: HERBALS
     Dosage: UNK, TID
     Route: 048
     Dates: end: 20160821
  55. LOCOID [Concomitant]
     Active Substance: HYDROCORTISONE BUTYRATE
     Indication: DERMATITIS
     Dosage: UNK
     Route: 062
     Dates: start: 20160328, end: 20160821
  56. HEPARINOID [Concomitant]
     Active Substance: CHONDROITIN SULFATE (BOVINE)
     Indication: PROMOTION OF PERIPHERAL CIRCULATION
     Dosage: UNK, BID
     Route: 062
     Dates: start: 20161101
  57. AZUNOL                             /00620101/ [Concomitant]
     Indication: PROMOTION OF WOUND HEALING
     Dosage: UNK
     Route: 062
     Dates: start: 20160613, end: 20161030
  58. HEMOCURON [Concomitant]
     Active Substance: TRIBENOSIDE
     Indication: ANORECTAL DISORDER
     Dosage: 200 MG, TID
     Route: 048
     Dates: end: 20160821
  59. POSTERISAN FORTE                   /01567801/ [Concomitant]
     Indication: ANORECTAL DISORDER
     Dosage: UNK UNK, QD
     Route: 065
     Dates: start: 20160523, end: 20160821
  60. PRIMPERAN [Concomitant]
     Active Substance: METOCLOPRAMIDE HYDROCHLORIDE
     Dosage: UNK UNK, TID
     Route: 048
     Dates: end: 20161030

REACTIONS (8)
  - Stomatitis [Recovered/Resolved]
  - Haemorrhoids [Recovering/Resolving]
  - Dysgeusia [Unknown]
  - Nausea [Recovered/Resolved]
  - Mechanical ileus [Unknown]
  - Abdominal distension [Unknown]
  - Decreased appetite [Unknown]
  - Paronychia [Unknown]

NARRATIVE: CASE EVENT DATE: 20160815
